FAERS Safety Report 17746829 (Version 3)
Quarter: 2020Q2

REPORT INFORMATION
  Report Type: Spontaneous
  Country: IN (occurrence: IN)
  Receive Date: 20200505
  Receipt Date: 20200608
  Transmission Date: 20200714
  Serious: Yes (Death, Hospitalization)
  Sender: FDA-Public Use
  Company Number: IN-MYLANLABS-2020M1045423

PATIENT
  Age: 67 Year
  Sex: Female
  Weight: 70 kg

DRUGS (2)
  1. HERTRAZ 440 [Suspect]
     Active Substance: TRASTUZUMAB
     Indication: BREAST CANCER
     Dosage: 440 MILLIGRAM, Q3W
     Route: 042
     Dates: start: 20180212, end: 20190130
  2. ATEN [Concomitant]
     Indication: BLOOD PRESSURE ABNORMAL
     Dosage: 100 MG (50 MG,2 IN 1D)
     Dates: start: 2013, end: 20191218

REACTIONS (2)
  - Jaundice [Fatal]
  - Disease progression [Fatal]
